FAERS Safety Report 15773205 (Version 1)
Quarter: 2018Q4

REPORT INFORMATION
  Report Type: Report from Study
  Country: US (occurrence: US)
  Receive Date: 20181228
  Receipt Date: 20181228
  Transmission Date: 20190205
  Serious: Yes (Hospitalization)
  Sender: FDA-Public Use
  Company Number: US-CELGENEUS-USA-20181207411

PATIENT
  Age: 66 Year
  Sex: Female
  Weight: 48.3 kg

DRUGS (2)
  1. CISPLATIN. [Suspect]
     Active Substance: CISPLATIN
     Indication: TRIPLE NEGATIVE BREAST CANCER
     Dosage: 50 MILLIGRAM/SQ. METER
     Route: 041
     Dates: start: 20180502, end: 20181211
  2. ROMIDEPSIN. [Suspect]
     Active Substance: ROMIDEPSIN
     Indication: TRIPLE NEGATIVE BREAST CANCER
     Route: 041

REACTIONS (1)
  - Delirium [Unknown]

NARRATIVE: CASE EVENT DATE: 20181219
